FAERS Safety Report 13489803 (Version 2)
Quarter: 2017Q2

REPORT INFORMATION
  Report Type: Report from Study
  Country: US (occurrence: US)
  Receive Date: 20170426
  Receipt Date: 20170509
  Transmission Date: 20170830
  Serious: Yes (Other)
  Sender: FDA-Public Use
  Company Number: US-JAZZ-2017-US-004444

PATIENT
  Sex: Female

DRUGS (6)
  1. PERCOCET                           /00446701/ [Concomitant]
     Active Substance: ACETAMINOPHEN\OXYCODONE HYDROCHLORIDE\OXYCODONE TEREPHTHALATE
  2. XYREM [Suspect]
     Active Substance: SODIUM OXYBATE
     Dosage: 3.5 G, TID
     Route: 048
     Dates: start: 201410
  3. NUVIGIL [Concomitant]
     Active Substance: ARMODAFINIL
  4. TRAZODONE [Concomitant]
     Active Substance: TRAZODONE HYDROCHLORIDE
  5. XYREM [Suspect]
     Active Substance: SODIUM OXYBATE
     Indication: NARCOLEPSY
     Dosage: 3 G, BID
     Route: 048
     Dates: start: 201207, end: 201208
  6. XYREM [Suspect]
     Active Substance: SODIUM OXYBATE
     Indication: CATAPLEXY
     Dosage: DOSE ADJUSTMENT
     Route: 048
     Dates: start: 201208, end: 201410

REACTIONS (7)
  - Loss of consciousness [Unknown]
  - Pain [Unknown]
  - Intentional self-injury [Unknown]
  - Sleep terror [Not Recovered/Not Resolved]
  - Fatigue [Unknown]
  - Hallucination [Unknown]
  - Rebound effect [Unknown]

NARRATIVE: CASE EVENT DATE: 2017
